FAERS Safety Report 6667742-9 (Version None)
Quarter: 2010Q1

REPORT INFORMATION
  Report Type: 
  Country: None (occurrence: None)
  Receive Date: 20100331
  Receipt Date: 20100316
  Transmission Date: 20100710
  Serious: Yes (Life-Threatening)
  Sender: FDA-Public Use
  Company Number: 2010-00225

PATIENT
  Age: 41 Year
  Sex: Female
  Weight: 105.9 kg

DRUGS (4)
  1. RAMIPRIL [Suspect]
     Indication: HYPERTENSION
     Dosage: 2.5 MG (1 IN 1 D), ORAL
     Route: 048
     Dates: start: 20100208, end: 20100210
  2. CALCIUM CARBONATE (CALCIUM) [Suspect]
     Indication: HYPERTENSION
     Dosage: 1.25 GM (1 IN 1 D), ORAL
     Route: 048
     Dates: start: 20100208, end: 20100209
  3. FERROUS SULFATE TAB [Suspect]
     Indication: ANAEMIA
     Dosage: 200 MG, ORAL
     Route: 048
     Dates: start: 20100208, end: 20100209
  4. BENDROFLUAZIDE (BENDROFLUMETHIAZIDE) [Concomitant]

REACTIONS (4)
  - ANGIOEDEMA [None]
  - DRUG HYPERSENSITIVITY [None]
  - FACIAL PAIN [None]
  - NASAL CONGESTION [None]
